FAERS Safety Report 16675972 (Version 1)
Quarter: 2019Q3

REPORT INFORMATION
  Report Type: Report from Study
  Country: None (occurrence: BE)
  Receive Date: 20190807
  Receipt Date: 20190807
  Transmission Date: 20191004
  Serious: Yes (Other)
  Sender: FDA-Public Use
  Company Number: BE-ABBVIE-19S-013-2693520-00

PATIENT
  Sex: Male

DRUGS (12)
  1. DUODOPA [Suspect]
     Active Substance: CARBIDOPA\LEVODOPA
     Dosage: MD=5ML, CD=1.9ML/HR DURING 16HRS , ED=1.5ML
     Route: 050
     Dates: start: 20190306, end: 201906
  2. STALEVO 100 [Concomitant]
     Indication: PARKINSON^S DISEASE
     Dosage: 100MG/25MG/200MG
     Route: 048
  3. XADAGO [Concomitant]
     Active Substance: SAFINAMIDE MESYLATE
     Indication: PARKINSON^S DISEASE
     Route: 048
  4. XADAGO [Concomitant]
     Active Substance: SAFINAMIDE MESYLATE
     Dosage: RESCUE MEDICATION
  5. STALEVO 100 [Concomitant]
     Dosage: 100MG/25MG/200MG RESCUE MEDICATION
  6. DUODOPA [Suspect]
     Active Substance: CARBIDOPA\LEVODOPA
     Dosage: MD=5ML, CD=2.3ML/HR DURING 16HRS, ED=1.5ML
     Route: 050
     Dates: start: 201906
  7. STALEVO 50 [Concomitant]
     Indication: PARKINSON^S DISEASE
     Dosage: 50MG/12.5MG/200MG
     Route: 048
  8. DUODOPA [Suspect]
     Active Substance: CARBIDOPA\LEVODOPA
     Indication: PARKINSON^S DISEASE
     Dosage: MD=5ML, CD=1.5ML/HR DURING 16HRS, ED=2ML
     Route: 050
     Dates: start: 20190226, end: 20190228
  9. DUODOPA [Suspect]
     Active Substance: CARBIDOPA\LEVODOPA
     Dosage: MD=5ML, CD=1.7ML/HR DURING 16HRS, ED=1ML
     Route: 050
     Dates: start: 20190228, end: 20190305
  10. STALEVO 50 [Concomitant]
     Dosage: 50MG/12.5MG/200MG RESCUE MEDICATION
     Route: 048
  11. AMANTADINE. [Concomitant]
     Active Substance: AMANTADINE HYDROCHLORIDE
     Indication: PARKINSON^S DISEASE
     Route: 048
  12. AMANTADINE. [Concomitant]
     Active Substance: AMANTADINE HYDROCHLORIDE

REACTIONS (9)
  - Apathy [Unknown]
  - On and off phenomenon [Recovered/Resolved]
  - Balance disorder [Not Recovered/Not Resolved]
  - Gastrointestinal haemorrhage [Unknown]
  - Dyskinesia [Unknown]
  - Gait disturbance [Unknown]
  - Stoma site pain [Not Recovered/Not Resolved]
  - Freezing phenomenon [Unknown]
  - Device issue [Recovered/Resolved]

NARRATIVE: CASE EVENT DATE: 2019
